FAERS Safety Report 5202679-3 (Version None)
Quarter: 2006Q4

REPORT INFORMATION
  Report Type: 
  Country: None (occurrence: None)
  Receive Date: 20061018
  Receipt Date: 20041213
  Transmission Date: 20070319
  Serious: Yes (Other)
  Sender: FDA-Public Use
  Company Number: PHEH2004US13236

PATIENT
  Sex: Male

DRUGS (1)
  1. ZOMETA [Suspect]
     Dosage: UNSPECIFIED

REACTIONS (3)
  - ACUTE PHASE REACTION [None]
  - BACK PAIN [None]
  - PYREXIA [None]
